FAERS Safety Report 6506121-1 (Version None)
Quarter: 2009Q4

REPORT INFORMATION
  Report Type: 
  Country: None (occurrence: None)
  Receive Date: 20091218
  Receipt Date: 20091216
  Transmission Date: 20100525
  Serious: Yes (Disabling)
  Sender: FDA-Public Use
  Company Number: US-ELI_LILLY_AND_COMPANY-US200910002079

PATIENT
  Sex: Female

DRUGS (7)
  1. HUMULIN 70/30 [Suspect]
     Indication: TYPE 2 DIABETES MELLITUS
     Dates: start: 19980701
  2. HUMULIN 70/30 [Suspect]
     Dosage: UNK, UNK
  3. HUMULIN 70/30 [Suspect]
     Dosage: 24 U, EACH MORNING
     Dates: start: 20000622
  4. HUMULIN 70/30 [Suspect]
     Dosage: 12 U, EACH EVENING
     Dates: start: 20000622
  5. HUMULIN 70/30 [Suspect]
     Dosage: 45 U, EACH MORNING
     Dates: start: 20090101
  6. HUMULIN 70/30 [Suspect]
     Dosage: 25 U, EACH EVENING
     Dates: start: 20090101
  7. GLUCOPHAGE [Concomitant]

REACTIONS (1)
  - NON-HODGKIN'S LYMPHOMA [None]
